FAERS Safety Report 4376177-3 (Version None)
Quarter: 2004Q2

REPORT INFORMATION
  Report Type: 
  Country: None (occurrence: None)
  Receive Date: 20040607
  Receipt Date: 20040524
  Transmission Date: 20050107
  Serious: Yes (Hospitalization)
  Sender: FDA-Public Use
  Company Number: UA-2004-026013

PATIENT
  Age: 45 Year
  Sex: Female

DRUGS (6)
  1. MIRENA [Suspect]
     Indication: MENORRHAGIA
     Dosage: 20 UG, CONT, INTRA-UTERINE
     Route: 015
     Dates: start: 20021227, end: 20040213
  2. DALACIN (CLINDAMYCIN HYDROCHLORIDE) CREAM [Concomitant]
  3. SOLCOTRICHOVAC [Concomitant]
  4. LIMPHOMIAZOT [Concomitant]
  5. VIBURCOL (HOMEOPATICS NOS) [Concomitant]
  6. GINKYO (GINKGO BILOBA) [Concomitant]

REACTIONS (1)
  - UTERINE LEIOMYOMA [None]
